FAERS Safety Report 12533229 (Version 1)
Quarter: 2016Q3

REPORT INFORMATION
  Report Type: Spontaneous
  Country: US (occurrence: US)
  Receive Date: 20160706
  Receipt Date: 20160706
  Transmission Date: 20161109
  Serious: No
  Sender: FDA-Public Use
  Company Number: US-PURDUE-USA-2015-0126413

PATIENT
  Age: 36 Year
  Sex: Male

DRUGS (1)
  1. BUTRANS [Suspect]
     Active Substance: BUPRENORPHINE
     Indication: PAIN
     Dosage: 10 MCG/HR, Q5 DAY
     Route: 062
     Dates: start: 20150826, end: 20150923

REACTIONS (14)
  - Application site haemorrhage [Recovered/Resolved]
  - Application site discolouration [Recovered/Resolved]
  - Wrong technique in product usage process [Unknown]
  - Application site swelling [Recovered/Resolved]
  - Application site pain [Recovered/Resolved]
  - Application site exfoliation [Unknown]
  - Application site vesicles [Recovered/Resolved]
  - Application site rash [Recovered/Resolved]
  - Application site erythema [Unknown]
  - Intentional product misuse [Unknown]
  - Drug prescribing error [Unknown]
  - Application site irritation [Unknown]
  - Application site erosion [Unknown]
  - Application site scar [Recovered/Resolved]

NARRATIVE: CASE EVENT DATE: 20150826
